FAERS Safety Report 12996360 (Version 1)
Quarter: 2016Q4

REPORT INFORMATION
  Report Type: Report from Study
  Country: None (occurrence: DE)
  Receive Date: 20161203
  Receipt Date: 20161203
  Transmission Date: 20170207
  Serious: Yes (Hospitalization)
  Sender: FDA-Public Use
  Company Number: DE-ABBVIE-16K-062-1798062-00

PATIENT
  Age: 63 Year
  Sex: Male

DRUGS (3)
  1. RAMILICH [Concomitant]
     Active Substance: RAMIPRIL
     Indication: PRODUCT USED FOR UNKNOWN INDICATION
  2. BISOPROLOL [Concomitant]
     Active Substance: BISOPROLOL
     Indication: PRODUCT USED FOR UNKNOWN INDICATION
  3. DUODOPA [Suspect]
     Active Substance: CARBIDOPA\LEVODOPA
     Indication: PARKINSON^S DISEASE
     Dosage: MD 8 ML, CRD 2.5 ML/H, ED 1 ML
     Route: 050
     Dates: start: 20140417

REACTIONS (1)
  - Pancreatic disorder [Not Recovered/Not Resolved]

NARRATIVE: CASE EVENT DATE: 201611
